FAERS Safety Report 9572040 (Version 1)
Quarter: 2013Q4

REPORT INFORMATION
  Report Type: Spontaneous
  Country: US (occurrence: US)
  Receive Date: 20131001
  Receipt Date: 20131001
  Transmission Date: 20140711
  Serious: Yes (Other)
  Sender: FDA-Public Use
  Company Number: US-PERRIGO-13US009625

PATIENT
  Age: 46 Year
  Sex: Female
  Weight: 45.35 kg

DRUGS (10)
  1. PROCHLORPERAZINE [Suspect]
     Indication: VOMITING
     Dosage: UNK,  Q 6 HOURS, PRN
     Route: 054
     Dates: start: 200006
  2. COMPAZINE [Suspect]
     Indication: VOMITING
     Dosage: UNK, UNK
     Route: 065
     Dates: start: 1981
  3. REGLAN [Suspect]
     Indication: VOMITING
     Dosage: UNK, UNK
     Route: 065
  4. TYLENOL WITH CODEINE NO.3 [Suspect]
     Indication: MIGRAINE
     Dosage: UNK, UNK
     Route: 048
     Dates: start: 1981
  5. STADOL [Suspect]
     Indication: MIGRAINE
     Dosage: UNK, UNK
     Route: 065
  6. CLOMID [Suspect]
     Indication: PREGNANCY
     Dosage: UNK, UNK
     Route: 048
  7. ABILIFY [Suspect]
     Indication: MIGRAINE PROPHYLAXIS
     Dosage: UNK, UNK
     Route: 048
  8. PRISTIQ [Suspect]
     Indication: PRODUCT USED FOR UNKNOWN INDICATION
     Dosage: UNK, UNK
     Route: 048
  9. CYMBALTA [Suspect]
     Indication: MIGRAINE
     Dosage: UNK, UNK
     Route: 048
  10. DEPAKOTE [Suspect]
     Indication: PRODUCT USED FOR UNKNOWN INDICATION
     Dosage: UNK, UNK
     Route: 048

REACTIONS (3)
  - Breast cancer [Unknown]
  - Tardive dyskinesia [Not Recovered/Not Resolved]
  - Dystonia [Not Recovered/Not Resolved]
